FAERS Safety Report 19505572 (Version 1)
Quarter: 2021Q3

REPORT INFORMATION
  Report Type: Spontaneous
  Country: US (occurrence: US)
  Receive Date: 20210707
  Receipt Date: 20210707
  Transmission Date: 20211014
  Serious: Yes (Disabling)
  Sender: FDA-Public Use
  Company Number: None

PATIENT
  Age: 67 Year
  Sex: Male
  Weight: 93.15 kg

DRUGS (9)
  1. LYRICA [Concomitant]
     Active Substance: PREGABALIN
  2. HYDROCODONE [Concomitant]
     Active Substance: HYDROCODONE
  3. LEVOTHYROXINE. [Concomitant]
     Active Substance: LEVOTHYROXINE
  4. TAMSULOSIN [Concomitant]
     Active Substance: TAMSULOSIN
  5. LANTUS [Concomitant]
     Active Substance: INSULIN GLARGINE
  6. ELIQUIS [Concomitant]
     Active Substance: APIXABAN
  7. LISINOPRIL. [Concomitant]
     Active Substance: LISINOPRIL
  8. FEXOFENADINE HYDROCHLORIDE. [Suspect]
     Active Substance: FEXOFENADINE HYDROCHLORIDE
     Indication: HYPERSENSITIVITY
     Dosage: ?          QUANTITY:1 TABLET(S);?
     Route: 048
  9. HUMULIN NOS [Concomitant]
     Active Substance: INSULIN HUMAN

REACTIONS (1)
  - Flank pain [None]

NARRATIVE: CASE EVENT DATE: 20210613
